FAERS Safety Report 12545028 (Version 3)
Quarter: 2017Q3

REPORT INFORMATION
  Report Type: Spontaneous
  Country: CA (occurrence: CA)
  Receive Date: 20160711
  Receipt Date: 20170821
  Transmission Date: 20171127
  Serious: Yes (Life-Threatening, Hospitalization, Other)
  Sender: FDA-Public Use
  Company Number: CA-APOTEX-2016AP009427

PATIENT
  Age: 63 Year
  Sex: Female

DRUGS (7)
  1. APO-LOSARTAN [Suspect]
     Active Substance: LOSARTAN
     Indication: HYPERTENSION
     Dosage: UNK
     Route: 065
  2. APO-HYDRO [Suspect]
     Active Substance: HYDROCHLOROTHIAZIDE
     Indication: HYPERTENSION
     Route: 065
  3. APO-IMATINIB [Suspect]
     Active Substance: IMATINIB
     Indication: GASTROINTESTINAL STROMAL TUMOUR
     Dosage: 400 MG, DAILY
     Route: 065
  4. SITAGLIPTIN [Concomitant]
     Active Substance: SITAGLIPTIN
     Indication: TYPE 2 DIABETES MELLITUS
     Dosage: UNK
     Route: 065
  5. OMEPRAZOLE. [Concomitant]
     Active Substance: OMEPRAZOLE
     Indication: GASTROOESOPHAGEAL REFLUX DISEASE
     Dosage: UNK
     Route: 065
  6. APO-METFORMIN ER [Suspect]
     Active Substance: METFORMIN HYDROCHLORIDE
     Indication: TYPE 2 DIABETES MELLITUS
     Dosage: UNK
     Route: 065
  7. BISOPROLOL [Concomitant]
     Active Substance: BISOPROLOL
     Indication: HYPERTENSION
     Dosage: UNK
     Route: 065

REACTIONS (20)
  - Blood potassium increased [Recovered/Resolved]
  - Dyspnoea [Unknown]
  - Hyperuricaemia [Recovered/Resolved]
  - Nausea [Unknown]
  - Contusion [Unknown]
  - Tachycardia [Unknown]
  - Tumour lysis syndrome [Unknown]
  - Hypotension [Unknown]
  - Blood phosphorus increased [Recovered/Resolved]
  - Calcium phosphate product increased [Recovered/Resolved]
  - Diarrhoea [Unknown]
  - Vomiting [Unknown]
  - Blood pH decreased [Recovered/Resolved]
  - Anuria [Recovered/Resolved]
  - Blood lactic acid increased [Recovered/Resolved]
  - Blood bicarbonate abnormal [Recovered/Resolved]
  - Acute kidney injury [Recovered/Resolved]
  - Decreased appetite [Unknown]
  - Confusional state [Recovered/Resolved]
  - Blood creatinine increased [Recovered/Resolved]
